FAERS Safety Report 6653502-1 (Version None)
Quarter: 2010Q1

REPORT INFORMATION
  Report Type: 
  Country: None (occurrence: None)
  Receive Date: 20100326
  Receipt Date: 20100318
  Transmission Date: 20100710
  Serious: Yes (Death, Life-Threatening, Hospitalization)
  Sender: FDA-Public Use
  Company Number: FR-TEVA-228348ISR

PATIENT
  Sex: Male

DRUGS (2)
  1. PACLITAXEL [Suspect]
     Route: 041
     Dates: start: 20091209, end: 20091229
  2. CARBOPLATIN [Concomitant]
     Dates: start: 20091209, end: 20091209

REACTIONS (2)
  - DYSPNOEA [None]
  - SEVERE ACUTE RESPIRATORY SYNDROME [None]
